FAERS Safety Report 5238369-0 (Version None)
Quarter: 2007Q1

REPORT INFORMATION
  Report Type: 
  Country: None (occurrence: None)
  Receive Date: 20070215
  Receipt Date: 20070209
  Transmission Date: 20070707
  Serious: Yes (Other)
  Sender: FDA-Public Use
  Company Number: DE-AVENTIS-200710346DE

PATIENT
  Sex: Male

DRUGS (3)
  1. LANTUS [Suspect]
     Dosage: DOSE: NOT REPORTED
     Route: 058
  2. LANTUS [Suspect]
     Dosage: DOSE: NOT REPORTED
     Route: 058
     Dates: start: 20040101
  3. INSULIN BASAL                      /01097301/ [Concomitant]
     Dosage: DOSE: NOT REPORTED
     Route: 058

REACTIONS (2)
  - DYSPHONIA [None]
  - NEOPLASM [None]
